FAERS Safety Report 4897435-X (Version None)
Quarter: 2006Q1

REPORT INFORMATION
  Report Type: 
  Country: None (occurrence: None)
  Receive Date: 20060130
  Receipt Date: 20060130
  Transmission Date: 20060701
  Serious: Yes (Life-Threatening)
  Sender: FDA-Public Use
  Company Number: None

PATIENT
  Age: 43 Year
  Sex: Female
  Weight: 81.6475 kg

DRUGS (1)
  1. ZICAM [Suspect]
     Dosage: 1 SPRAY PER NOSTRAL ONCE
     Dates: start: 20051208, end: 20051208

REACTIONS (4)
  - AGEUSIA [None]
  - DYSGEUSIA [None]
  - MENTAL DISORDER [None]
  - PAROSMIA [None]
